FAERS Safety Report 8954548 (Version 1)
Quarter: 2012Q4

REPORT INFORMATION
  Report Type: Spontaneous
  Country: US (occurrence: None)
  Receive Date: 20121205
  Receipt Date: 20121205
  Transmission Date: 20130627
  Serious: No
  Sender: FDA-Public Use
  Company Number: None

PATIENT
  Sex: Female
  Weight: 104.33 kg

DRUGS (1)
  1. CIPROFLOXACIN [Suspect]
     Indication: BLADDER INFECTION
     Dosage: 250 mg 2-daily morning evening

REACTIONS (6)
  - Fatigue [None]
  - Cold sweat [None]
  - Chills [None]
  - Cough [None]
  - Asthenia [None]
  - Somnolence [None]
